FAERS Safety Report 4952810-X (Version None)
Quarter: 2006Q1

REPORT INFORMATION
  Report Type: 
  Country: None (occurrence: None)
  Receive Date: 20060320
  Receipt Date: 20060310
  Transmission Date: 20060701
  Serious: Yes (Disabling, Other)
  Sender: FDA-Public Use
  Company Number: 2006035182

PATIENT
  Age: 47 Year
  Sex: Male
  Weight: 103.4201 kg

DRUGS (6)
  1. LIPITOR [Suspect]
     Indication: BLOOD CHOLESTEROL INCREASED
     Dosage: 40 MG (40 MG, 1 IN 1 D)
     Dates: start: 19960101
  2. TENORMIN [Suspect]
     Indication: ILL-DEFINED DISORDER
     Dates: start: 20060101, end: 20060101
  3. PROTONIX [Concomitant]
  4. PENTOXIFYLLINE [Concomitant]
  5. PRILOSEC [Concomitant]
  6. ACIPHEX [Concomitant]

REACTIONS (3)
  - DIABETES MELLITUS NON-INSULIN-DEPENDENT [None]
  - DIZZINESS [None]
  - HYPOTENSION [None]
